FAERS Safety Report 17463754 (Version 1)
Quarter: 2020Q1

REPORT INFORMATION
  Report Type: Spontaneous
  Country: US (occurrence: US)
  Receive Date: 20200226
  Receipt Date: 20200226
  Transmission Date: 20200409
  Serious: Yes (Other)
  Sender: FDA-Public Use
  Company Number: US-SA-2020SA047815

PATIENT
  Age: 44 Year
  Sex: Female

DRUGS (2)
  1. ALLEGRA [Suspect]
     Active Substance: FEXOFENADINE HYDROCHLORIDE
     Indication: DERMATITIS EXFOLIATIVE GENERALISED
     Dosage: 180 MG, BID
     Route: 048
     Dates: start: 20200129
  2. PREDNISONE. [Suspect]
     Active Substance: PREDNISONE
     Indication: DERMATITIS EXFOLIATIVE GENERALISED
     Dosage: PREDNISONE TAPER OF ^60, 60, 50, 50, 40, 40, 30, 30

REACTIONS (2)
  - Dermatitis exfoliative generalised [Unknown]
  - Condition aggravated [Unknown]

NARRATIVE: CASE EVENT DATE: 20200212
